FAERS Safety Report 7817141-9 (Version None)
Quarter: 2011Q4

REPORT INFORMATION
  Report Type: 
  Country: None (occurrence: None)
  Receive Date: 20111017
  Receipt Date: 20111017
  Transmission Date: 20120403
  Serious: Yes (Other)
  Sender: FDA-Public Use
  Company Number: None

PATIENT
  Age: 46 Year
  Sex: Male
  Weight: 113.39 kg

DRUGS (1)
  1. TRAMADOL HCL [Suspect]
     Indication: NEUROPATHY PERIPHERAL
     Dosage: 150MG
     Route: 048

REACTIONS (1)
  - DYSPHONIA [None]
